FAERS Safety Report 7041206-5 (Version None)
Quarter: 2010Q4

REPORT INFORMATION
  Report Type: 
  Country: None (occurrence: None)
  Receive Date: 20101013
  Receipt Date: 20101004
  Transmission Date: 20110411
  Serious: Yes (Other)
  Sender: FDA-Public Use
  Company Number: US-SANOFI-AVENTIS-2010SA059862

PATIENT
  Age: 68 Year
  Sex: Male

DRUGS (2)
  1. ALFUZOSIN HYDROCHLORIDE [Suspect]
     Route: 048
  2. ATORVASTATIN [Suspect]
     Route: 048

REACTIONS (4)
  - CD4/CD8 RATIO DECREASED [None]
  - INTERSTITIAL GRANULOMATOUS DERMATITIS [None]
  - PSEUDOLYMPHOMA [None]
  - SKIN PLAQUE [None]
